FAERS Safety Report 12128054 (Version 2)
Quarter: 2016Q2

REPORT INFORMATION
  Report Type: Report from Study
  Country: US (occurrence: US)
  Receive Date: 20160229
  Receipt Date: 20160415
  Transmission Date: 20160815
  Serious: Yes (Other)
  Sender: FDA-Public Use
  Company Number: US-MYLANLABS-2016M1007288

PATIENT
  Sex: Female

DRUGS (2)
  1. AMNESTEEM [Suspect]
     Active Substance: ISOTRETINOIN
     Dosage: 80 MG, QD
     Route: 065
     Dates: start: 20130501, end: 2013
  2. AMNESTEEM [Suspect]
     Active Substance: ISOTRETINOIN
     Dosage: UNK
     Dates: start: 20130501, end: 2013

REACTIONS (2)
  - Abortion induced [Recovered/Resolved]
  - Maternal exposure before pregnancy [Recovered/Resolved]
